FAERS Safety Report 19939305 (Version 3)
Quarter: 2022Q4

REPORT INFORMATION
  Report Type: Spontaneous
  Country: US (occurrence: US)
  Receive Date: 20211011
  Receipt Date: 20221227
  Transmission Date: 20230113
  Serious: No
  Sender: FDA-Public Use
  Company Number: US-PFIZER INC-202101284677

PATIENT
  Age: 71 Year
  Sex: Male
  Weight: 63.5 kg

DRUGS (5)
  1. VYNDAMAX [Suspect]
     Active Substance: TAFAMIDIS
     Indication: Cardiac amyloidosis
     Dosage: 61MG ONCE A DAY
     Route: 048
     Dates: start: 202001
  2. ELIQUIS [Concomitant]
     Active Substance: APIXABAN
     Indication: Thrombosis
     Dosage: 5 MG, 2X/DAY
     Dates: start: 2018
  3. TUDCABIL [Concomitant]
     Indication: Cardiac amyloidosis
     Dosage: 250 MG, 2X/DAY
  4. DOXYCYCLINE [Concomitant]
     Active Substance: DOXYCYCLINE
     Indication: Cardiac amyloidosis
     Dosage: 100 MG, 2X/DAY
  5. GREEN TEA EXTRACT [Concomitant]
     Indication: Cardiac amyloidosis
     Dosage: UNK, 1X/DAY

REACTIONS (1)
  - Malaise [Recovered/Resolved]
